FAERS Safety Report 6300348-X (Version None)
Quarter: 2009Q3

REPORT INFORMATION
  Report Type: 
  Country: None (occurrence: None)
  Receive Date: 20090805
  Receipt Date: 20090724
  Transmission Date: 20100115
  Serious: Yes (Life-Threatening, Hospitalization, Other)
  Sender: FDA-Public Use
  Company Number: 238272K09USA

PATIENT
  Age: 61 Year
  Sex: Female

DRUGS (1)
  1. REBIF [Suspect]
     Indication: MULTIPLE SCLEROSIS
     Dosage: 44 MCG, 3 IN 1 WEEKS, SUBCUTANEOUS
     Route: 058
     Dates: start: 20060731, end: 20090401

REACTIONS (5)
  - CLOSTRIDIAL INFECTION [None]
  - DIVERTICULITIS [None]
  - OVARIAN CYST [None]
  - PROCEDURAL COMPLICATION [None]
  - WAIST CIRCUMFERENCE INCREASED [None]
